FAERS Safety Report 4580471-0 (Version None)
Quarter: 2005Q1

REPORT INFORMATION
  Report Type: 
  Country: None (occurrence: None)
  Receive Date: 20050214
  Receipt Date: 20040128
  Transmission Date: 20050727
  Serious: No
  Sender: FDA-Public Use
  Company Number: PHEH2003US10110

PATIENT
  Age: 53 Year
  Sex: Female

DRUGS (1)
  1. LAMICTAL [Suspect]
     Indication: ILL-DEFINED DISORDER
     Route: 048

REACTIONS (1)
  - RASH [None]
